FAERS Safety Report 5954311-9 (Version None)
Quarter: 2008Q4

REPORT INFORMATION
  Report Type: 
  Country: None (occurrence: None)
  Receive Date: 20081117
  Receipt Date: 20080305
  Transmission Date: 20090506
  Serious: No
  Sender: FDA-Public Use
  Company Number: US-AMGEN-KDL256126

PATIENT
  Sex: Female

DRUGS (4)
  1. ENBREL [Suspect]
     Indication: PSORIASIS
     Dates: start: 20070909, end: 20071201
  2. ALLEGRA [Concomitant]
  3. PRILOSEC [Concomitant]
  4. LYRICA [Concomitant]
     Dates: start: 20071001

REACTIONS (1)
  - TUBERCULIN TEST POSITIVE [None]
